FAERS Safety Report 9931914 (Version 2)
Quarter: 2014Q1

REPORT INFORMATION
  Report Type: Spontaneous
  Country: FI (occurrence: FI)
  Receive Date: 20140228
  Receipt Date: 20140306
  Transmission Date: 20141002
  Serious: Yes (Hospitalization)
  Sender: FDA-Public Use
  Company Number: FI-JNJFOC-20140214751

PATIENT
  Age: 36 Year
  Sex: Male

DRUGS (5)
  1. REMICADE [Suspect]
     Indication: ANKYLOSING SPONDYLITIS
     Route: 042
     Dates: start: 20090201, end: 20130925
  2. HUMIRA [Suspect]
     Indication: PRODUCT USED FOR UNKNOWN INDICATION
     Route: 065
  3. TREXAN METHOTREXATE [Concomitant]
     Route: 048
  4. SALAZOPYRIN EN [Concomitant]
     Route: 048
  5. KALCIPOS-D [Concomitant]
     Dosage: 500 MG/ 400 IU
     Route: 048

REACTIONS (2)
  - Dermatitis bullous [Not Recovered/Not Resolved]
  - Psoriasis [Not Recovered/Not Resolved]
